FAERS Safety Report 24236569 (Version 2)
Quarter: 2024Q3

REPORT INFORMATION
  Report Type: Spontaneous
  Country: GB (occurrence: GB)
  Receive Date: 20240822
  Receipt Date: 20240906
  Transmission Date: 20241017
  Serious: Yes (Death, Hospitalization)
  Sender: TEVA
  Company Number: GB-TEVA-VS-3233603

PATIENT
  Age: 80 Year
  Sex: Female

DRUGS (5)
  1. PREDNISOLONE [Suspect]
     Active Substance: PREDNISOLONE
     Indication: Pemphigoid
     Route: 048
  2. PREDNISOLONE [Suspect]
     Active Substance: PREDNISOLONE
     Indication: Pemphigoid
     Route: 048
  3. CLOBETASOL PROPIONATE [Concomitant]
     Active Substance: CLOBETASOL PROPIONATE
     Indication: Pemphigoid
     Route: 065
  4. DOXYCYCLINE [Concomitant]
     Active Substance: DOXYCYCLINE\DOXYCYCLINE HYCLATE
     Indication: Pemphigoid
     Route: 065
  5. DAPSONE [Suspect]
     Active Substance: DAPSONE
     Indication: Pemphigoid
     Route: 048

REACTIONS (2)
  - Delirium [Fatal]
  - Methaemoglobinaemia [Fatal]
